FAERS Safety Report 18997551 (Version 2)
Quarter: 2022Q2

REPORT INFORMATION
  Report Type: Spontaneous
  Country: GB (occurrence: GB)
  Receive Date: 20210311
  Receipt Date: 20220607
  Transmission Date: 20220720
  Serious: Yes (Other)
  Sender: FDA-Public Use
  Company Number: None

PATIENT
  Age: 63 Year
  Sex: Male

DRUGS (10)
  1. TOCILIZUMAB [Suspect]
     Active Substance: TOCILIZUMAB
     Indication: Coronavirus infection
     Route: 065
     Dates: start: 20210222
  2. REMDESIVIR [Suspect]
     Active Substance: REMDESIVIR
     Indication: Coronavirus infection
     Dosage: MOST RECENT DOSE: 22/FEB/2021
     Route: 065
     Dates: start: 20210218
  3. CALCIUM CARBONATE\CHOLECALCIFEROL [Concomitant]
     Active Substance: CALCIUM CARBONATE\CHOLECALCIFEROL
  4. AMOXICILLIN [Concomitant]
     Active Substance: AMOXICILLIN
  5. ASPIRIN [Concomitant]
     Active Substance: ASPIRIN
  6. CLARITHROMYCIN [Concomitant]
     Active Substance: CLARITHROMYCIN
  7. DEXAMETHASONE [Concomitant]
     Active Substance: DEXAMETHASONE
  8. ENOXAPARIN [Concomitant]
     Active Substance: ENOXAPARIN
  9. LANSOPRAZOLE [Concomitant]
     Active Substance: LANSOPRAZOLE
  10. RIVAROXABAN [Concomitant]
     Active Substance: RIVAROXABAN

REACTIONS (3)
  - Liver function test increased [Recovering/Resolving]
  - Gamma-glutamyltransferase increased [Recovering/Resolving]
  - Alanine aminotransferase increased [Recovering/Resolving]

NARRATIVE: CASE EVENT DATE: 20210223
